FAERS Safety Report 6925184-2 (Version None)
Quarter: 2010Q3

REPORT INFORMATION
  Report Type: 
  Country: None (occurrence: None)
  Receive Date: 20100816
  Receipt Date: 20100809
  Transmission Date: 20110219
  Serious: Yes (Hospitalization, Other)
  Sender: FDA-Public Use
  Company Number: TR-ROXANE LABORATORIES, INC.-2010-RO-00997RO

PATIENT
  Age: 51 Year
  Sex: Male

DRUGS (3)
  1. NAPROXEN [Suspect]
     Indication: ARTHRALGIA
  2. NAPROXEN [Suspect]
     Indication: JOINT SWELLING
  3. INDOMETHACIN [Suspect]

REACTIONS (6)
  - ARTHRALGIA [None]
  - DRUG ERUPTION [None]
  - DRUG INEFFECTIVE [None]
  - ENANTHEMA [None]
  - GASTRITIS EROSIVE [None]
  - JOINT SWELLING [None]
